FAERS Safety Report 25734369 (Version 1)
Quarter: 2025Q3

REPORT INFORMATION
  Report Type: Spontaneous
  Country: US (occurrence: US)
  Receive Date: 20250828
  Receipt Date: 20250828
  Transmission Date: 20251021
  Serious: No
  Sender: Kenvue
  Company Number: US-KENVUE-20250809521

PATIENT
  Sex: Male

DRUGS (18)
  1. IBUPROFEN [Suspect]
     Active Substance: IBUPROFEN
     Indication: Myalgia
     Route: 065
  2. IBUPROFEN [Suspect]
     Active Substance: IBUPROFEN
     Indication: Pain in extremity
  3. TYLENOL [Concomitant]
     Active Substance: ACETAMINOPHEN
     Indication: Pain in extremity
     Route: 065
  4. TYLENOL [Concomitant]
     Active Substance: ACETAMINOPHEN
     Indication: Myalgia
  5. Oral Treprostinil (TREPROSTINIL DIETHANOLAMINE) [Concomitant]
     Indication: Pulmonary arterial hypertension
     Dosage: 2 TABLETS OF 0.125 MG AND 0.25 MG EACH
     Route: 048
     Dates: start: 2025, end: 2025
  6. Oral Treprostinil (TREPROSTINIL DIETHANOLAMINE) [Concomitant]
     Dosage: 0.875 MILLIGRAM, THRICE A DAY
     Route: 048
     Dates: start: 2025, end: 202506
  7. Oral Treprostinil (TREPROSTINIL DIETHANOLAMINE) [Concomitant]
     Dosage: 1 MILLIGRAM, THRICE A DAY
     Route: 048
     Dates: start: 202506, end: 202506
  8. Oral Treprostinil (TREPROSTINIL DIETHANOLAMINE) [Concomitant]
     Dosage: 1.125 MILLIGRAM, THRICE A DAY
     Route: 048
     Dates: start: 202506, end: 202506
  9. Oral Treprostinil (TREPROSTINIL DIETHANOLAMINE) [Concomitant]
     Dosage: 1.125 MILLIGRAM, THRICE A DAY
     Route: 048
     Dates: start: 202506, end: 2025
  10. Oral Treprostinil (TREPROSTINIL DIETHANOLAMINE) [Concomitant]
     Dosage: 1.7 MILLIGRAM, THRICE A DAY
     Route: 048
     Dates: start: 2025
  11. Oral Treprostinil (TREPROSTINIL DIETHANOLAMINE) [Concomitant]
     Route: 048
     Dates: start: 202504
  12. ORENITRAM [Concomitant]
     Active Substance: TREPROSTINIL
     Indication: Pulmonary arterial hypertension
     Route: 048
     Dates: start: 202504
  13. ORENITRAM [Concomitant]
     Active Substance: TREPROSTINIL
     Route: 048
  14. ORENITRAM [Concomitant]
     Active Substance: TREPROSTINIL
     Route: 048
  15. OPSUMIT [Concomitant]
     Active Substance: MACITENTAN
     Indication: Product used for unknown indication
     Route: 065
     Dates: start: 202505
  16. ADEMPAS [Concomitant]
     Active Substance: RIOCIGUAT
     Indication: Product used for unknown indication
     Route: 065
  17. FUROSEMIDE [Concomitant]
     Active Substance: FUROSEMIDE
     Indication: Fluid retention
     Route: 065
  18. POTASSIUM [Concomitant]
     Active Substance: POTASSIUM
     Indication: Fluid retention
     Route: 065

REACTIONS (1)
  - Product administered to patient of inappropriate age [Unknown]
